FAERS Safety Report 6210362-0 (Version None)
Quarter: 2009Q2

REPORT INFORMATION
  Report Type: 
  Country: None (occurrence: None)
  Receive Date: 20090529
  Receipt Date: 20090529
  Transmission Date: 20091009
  Serious: No
  Sender: FDA-Public Use
  Company Number: None

PATIENT
  Sex: Female

DRUGS (1)
  1. LOVAZA [Suspect]
     Indication: HYPERLIPIDAEMIA
     Dosage: 1 G 2 G TWICE DAILY PO
     Route: 048
     Dates: start: 20080601, end: 20090528

REACTIONS (4)
  - ARTHRALGIA [None]
  - GAIT DISTURBANCE [None]
  - INSOMNIA [None]
  - PAIN IN EXTREMITY [None]
